FAERS Safety Report 7106766-4 (Version None)
Quarter: 2010Q4

REPORT INFORMATION
  Report Type: 
  Country: None (occurrence: None)
  Receive Date: 20101116
  Receipt Date: 20101112
  Transmission Date: 20110411
  Serious: Yes (Other)
  Sender: FDA-Public Use
  Company Number: GB-MERCK-0902GBR00091

PATIENT
  Sex: Male

DRUGS (2)
  1. ZETIA [Suspect]
     Route: 065
  2. ATORVASTATIN [Suspect]
     Route: 065

REACTIONS (2)
  - CONDITION AGGRAVATED [None]
  - PSORIASIS [None]
